FAERS Safety Report 7252335-5 (Version None)
Quarter: 2011Q1

REPORT INFORMATION
  Report Type: 
  Country: None (occurrence: None)
  Receive Date: 20110129
  Receipt Date: 20100118
  Transmission Date: 20110831
  Serious: No
  Sender: FDA-Public Use
  Company Number: US-ABBOTT-10P-163-0619253-00

PATIENT
  Sex: Female
  Weight: 61.29 kg

DRUGS (6)
  1. METHOTREXATE [Concomitant]
     Indication: PRODUCT USED FOR UNKNOWN INDICATION
     Dosage: EVERY WED
  2. CALCIUM WITH VITAMIN D [Concomitant]
     Indication: PRODUCT USED FOR UNKNOWN INDICATION
  3. PREDNISONE [Concomitant]
     Indication: PRODUCT USED FOR UNKNOWN INDICATION
  4. VITAMIN B-12 [Concomitant]
     Indication: BLOOD COUNT ABNORMAL
  5. HUMIRA [Suspect]
     Indication: RHEUMATOID ARTHRITIS
  6. IRON [Concomitant]
     Indication: PRODUCT USED FOR UNKNOWN INDICATION

REACTIONS (3)
  - URINARY TRACT INFECTION [None]
  - LACERATION [None]
  - BLADDER DISORDER [None]
